FAERS Safety Report 24299634 (Version 1)
Quarter: 2024Q3

REPORT INFORMATION
  Report Type: Spontaneous
  Country: US (occurrence: US)
  Receive Date: 20240909
  Receipt Date: 20240909
  Transmission Date: 20241017
  Serious: No
  Sender: PFIZER
  Company Number: US-PFIZER INC-202400252235

PATIENT
  Age: 63 Year
  Sex: Female

DRUGS (2)
  1. IBRANCE [Suspect]
     Active Substance: PALBOCICLIB
     Dosage: 100 MG
     Dates: end: 202203
  2. FEMARA [Suspect]
     Active Substance: LETROZOLE
     Dosage: UNK
     Dates: end: 202203

REACTIONS (2)
  - Illness [Unknown]
  - Nausea [Unknown]
